FAERS Safety Report 5542826-7 (Version None)
Quarter: 2007Q4

REPORT INFORMATION
  Report Type: 
  Country: None (occurrence: None)
  Receive Date: 20071210
  Receipt Date: 20071128
  Transmission Date: 20080405
  Serious: Yes (Death, Life-Threatening)
  Sender: FDA-Public Use
  Company Number: JP-PFIZER INC-2007088191

PATIENT
  Age: 71 Year
  Sex: Female
  Weight: 65.1 kg

DRUGS (16)
  1. VFEND [Suspect]
     Indication: FEBRILE NEUTROPENIA
     Route: 042
     Dates: start: 20060730, end: 20060730
  2. VFEND [Suspect]
     Route: 042
     Dates: start: 20060731, end: 20060814
  3. DIFLUCAN [Concomitant]
     Indication: FEBRILE NEUTROPENIA
     Route: 048
     Dates: start: 20060704, end: 20060730
  4. ALFAROL [Concomitant]
     Route: 048
  5. GLAKAY [Concomitant]
     Route: 048
  6. ZANTAC [Concomitant]
     Route: 048
  7. ULCERLMIN [Concomitant]
     Route: 048
  8. TANNALBIN [Concomitant]
     Route: 048
  9. POLYMYXIN B SULFATE [Concomitant]
     Route: 048
  10. VANCOMYCIN HYDROCHLORIDE [Concomitant]
     Route: 042
  11. MEROPEN [Concomitant]
     Route: 042
     Dates: start: 20060729, end: 20060814
  12. NEUTROGIN [Concomitant]
     Route: 042
     Dates: start: 20060801, end: 20060820
  13. HABEKACIN [Concomitant]
     Route: 042
     Dates: start: 20060801, end: 20060813
  14. DESFERAL [Concomitant]
     Route: 042
  15. PLATELETS [Concomitant]
     Route: 042
  16. RED BLOOD CELLS [Concomitant]
     Route: 042

REACTIONS (2)
  - C-REACTIVE PROTEIN INCREASED [None]
  - DEATH [None]
